FAERS Safety Report 16310336 (Version 1)
Quarter: 2019Q2

REPORT INFORMATION
  Report Type: Spontaneous
  Country: US (occurrence: US)
  Receive Date: 20190513
  Receipt Date: 20190513
  Transmission Date: 20190711
  Serious: Yes (Death)
  Sender: FDA-Public Use
  Company Number: None

PATIENT
  Sex: Male

DRUGS (3)
  1. OXYCODONE [Concomitant]
     Active Substance: OXYCODONE
  2. NEXAVAR [Concomitant]
     Active Substance: SORAFENIB
  3. XIFAXAN [Suspect]
     Active Substance: RIFAXIMIN
     Indication: HEPATOCELLULAR CARCINOMA
     Route: 048
     Dates: start: 20190329

REACTIONS (1)
  - Death [None]
